FAERS Safety Report 16010195 (Version 2)
Quarter: 2019Q1

REPORT INFORMATION
  Report Type: Report from Study
  Country: CO (occurrence: CO)
  Receive Date: 20190225
  Receipt Date: 20190325
  Transmission Date: 20190418
  Serious: Yes (Life-Threatening, Hospitalization, Other)
  Sender: FDA-Public Use
  Company Number: CO-BRISTOL-MYERS SQUIBB COMPANY-BMS-2019-017534

PATIENT
  Age: 41 Year
  Sex: Male

DRUGS (1)
  1. NIVOLUMAB [Suspect]
     Active Substance: NIVOLUMAB
     Indication: LUNG NEOPLASM MALIGNANT
     Dosage: 159 MG, Q2WK
     Route: 065
     Dates: start: 20181026, end: 20190123

REACTIONS (7)
  - Nausea [Recovered/Resolved]
  - Metastases to central nervous system [Recovering/Resolving]
  - Respiratory distress [Unknown]
  - Cyanosis [Unknown]
  - Headache [Recovered/Resolved]
  - Decreased appetite [Recovered/Resolved]
  - Lung infection [Recovering/Resolving]

NARRATIVE: CASE EVENT DATE: 20190218
